FAERS Safety Report 9362931 (Version 1)
Quarter: 2013Q2

REPORT INFORMATION
  Report Type: Spontaneous
  Country: FR (occurrence: FR)
  Receive Date: 20130624
  Receipt Date: 20130624
  Transmission Date: 20140414
  Serious: Yes (Hospitalization)
  Sender: FDA-Public Use
  Company Number: FR-ROCHE-1214620

PATIENT
  Age: 48 Year
  Sex: Male
  Weight: 75 kg

DRUGS (5)
  1. ZELBORAF [Suspect]
     Indication: SKIN CANCER
     Route: 048
     Dates: start: 20130225, end: 201305
  2. NOVOMIX [Concomitant]
     Indication: DIABETES MELLITUS
     Route: 058
  3. SPIFEN [Concomitant]
     Indication: PAIN
     Dosage: 400 MG
     Route: 048
     Dates: start: 20130415
  4. ATARAX (FRANCE) [Concomitant]
     Indication: PRURITUS
     Dosage: 25 MG
     Route: 048
     Dates: start: 20130415
  5. DOLIPRANE [Concomitant]
     Indication: PAIN
     Dosage: 1 GM
     Route: 065

REACTIONS (6)
  - Pruritus [Recovered/Resolved]
  - Insomnia [Unknown]
  - Gamma-glutamyltransferase increased [Recovered/Resolved]
  - Hepatic enzyme increased [Recovered/Resolved]
  - Rash [Recovered/Resolved]
  - Pyrexia [Recovered/Resolved]
